FAERS Safety Report 5717544-2 (Version None)
Quarter: 2008Q2

REPORT INFORMATION
  Report Type: 
  Country: None (occurrence: None)
  Receive Date: 20080425
  Receipt Date: 20080418
  Transmission Date: 20081010
  Serious: Yes (Other)
  Sender: FDA-Public Use
  Company Number: BR-JNJFOC-20080306623

PATIENT
  Age: 35 Year
  Sex: Female
  Weight: 52 kg

DRUGS (2)
  1. ORTHO EVRA [Suspect]
     Indication: ENDOMETRIOSIS
  2. LEXAPRO [Concomitant]

REACTIONS (5)
  - ARRHYTHMIA [None]
  - FLUID RETENTION [None]
  - MEDICATION ERROR [None]
  - NAUSEA [None]
  - OFF LABEL USE [None]
